FAERS Safety Report 5467751-1 (Version None)
Quarter: 2007Q3

REPORT INFORMATION
  Report Type: 
  Country: None (occurrence: None)
  Receive Date: 20070926
  Receipt Date: 20070919
  Transmission Date: 20080115
  Serious: Yes (Other)
  Sender: FDA-Public Use
  Company Number: PHEH2007US12546

PATIENT
  Sex: Female

DRUGS (1)
  1. ZOMETA [Suspect]
     Dosage: UNK

REACTIONS (7)
  - ANXIETY [None]
  - DEFORMITY [None]
  - DISABILITY [None]
  - EMOTIONAL DISTRESS [None]
  - INFECTION [None]
  - OSTEONECROSIS [None]
  - PAIN [None]
